FAERS Safety Report 23332296 (Version 1)
Quarter: 2023Q4

REPORT INFORMATION
  Report Type: Spontaneous
  Country: JP (occurrence: JP)
  Receive Date: 20231222
  Receipt Date: 20231222
  Transmission Date: 20240110
  Serious: Yes (Hospitalization)
  Sender: FDA-Public Use
  Company Number: JP-BAYER-2023A180642

PATIENT
  Sex: Male

DRUGS (2)
  1. KERENDIA [Suspect]
     Active Substance: FINERENONE
     Indication: Type 2 diabetes mellitus
     Dosage: 10MG
     Dates: start: 20231102
  2. KERENDIA [Suspect]
     Active Substance: FINERENONE
     Indication: Chronic kidney disease

REACTIONS (2)
  - Physical deconditioning [Unknown]
  - Gait inability [Unknown]
